FAERS Safety Report 9735503 (Version 2)
Quarter: 2013Q4

REPORT INFORMATION
  Report Type: Spontaneous
  Country: US (occurrence: US)
  Receive Date: 20131206
  Receipt Date: 20131206
  Transmission Date: 20140711
  Serious: No
  Sender: FDA-Public Use
  Company Number: US-GILEAD-2009-0022759

PATIENT
  Sex: Female
  Weight: 77.11 kg

DRUGS (7)
  1. LETAIRIS [Suspect]
     Route: 048
     Dates: start: 20080408
  2. COUMADIN [Concomitant]
  3. REVATIO [Concomitant]
  4. TYLENOL ARTHRITIS [Concomitant]
  5. SIMVASTIN [Concomitant]
  6. TRIAMTERENE HCTZ [Concomitant]
  7. NIFEREX GOLD [Concomitant]

REACTIONS (1)
  - Liver function test abnormal [Unknown]
